FAERS Safety Report 15348028 (Version 2)
Quarter: 2023Q2

REPORT INFORMATION
  Report Type: Report from Study
  Country: JP (occurrence: JP)
  Receive Date: 20180904
  Receipt Date: 20230414
  Transmission Date: 20230721
  Serious: Yes (Hospitalization)
  Sender: FDA-Public Use
  Company Number: JP-JNJFOC-20180826608

PATIENT
  Age: 78 Year
  Sex: Male
  Weight: 63 kg

DRUGS (30)
  1. ABIRATERONE ACETATE [Suspect]
     Active Substance: ABIRATERONE ACETATE
     Indication: Hormone-refractory prostate cancer
     Route: 048
     Dates: start: 20171206, end: 20171212
  2. ABIRATERONE ACETATE [Suspect]
     Active Substance: ABIRATERONE ACETATE
     Route: 048
     Dates: start: 20180110, end: 20190422
  3. PREDNISOLONE [Suspect]
     Active Substance: PREDNISOLONE
     Indication: Hormone-refractory prostate cancer
     Route: 048
     Dates: start: 20171206, end: 20171212
  4. PREDNISOLONE [Suspect]
     Active Substance: PREDNISOLONE
     Route: 048
     Dates: start: 20180110
  5. IPATASERTIB [Suspect]
     Active Substance: IPATASERTIB
     Indication: Hormone-refractory prostate cancer
     Route: 048
     Dates: start: 20171206, end: 20171212
  6. IPATASERTIB [Suspect]
     Active Substance: IPATASERTIB
     Route: 048
     Dates: start: 20180110, end: 20180202
  7. IPATASERTIB [Suspect]
     Active Substance: IPATASERTIB
     Route: 048
     Dates: start: 20180302, end: 20180413
  8. IPATASERTIB [Suspect]
     Active Substance: IPATASERTIB
     Route: 048
     Dates: start: 20180511, end: 20180620
  9. VOGLIBOSE [Concomitant]
     Active Substance: VOGLIBOSE
     Route: 048
     Dates: start: 20180210
  10. ATORVASTATIN CALCIUM [Concomitant]
     Active Substance: ATORVASTATIN CALCIUM
     Route: 048
  11. AMLODIPINE BESYLATE [Concomitant]
     Active Substance: AMLODIPINE BESYLATE
     Route: 048
  12. OLMESARTAN MEDOXOMIL [Concomitant]
     Active Substance: OLMESARTAN MEDOXOMIL
     Route: 048
     Dates: end: 20180511
  13. LANSOPRAZOLE [Concomitant]
     Active Substance: LANSOPRAZOLE
     Route: 048
  14. SODIUM PICOSULFATE [Concomitant]
     Active Substance: SODIUM PICOSULFATE
     Route: 048
  15. URSODIOL [Concomitant]
     Active Substance: URSODIOL
     Route: 048
  16. GOSERELIN ACETATE [Concomitant]
     Active Substance: GOSERELIN ACETATE
     Route: 058
  17. LINAGLIPTIN [Concomitant]
     Active Substance: LINAGLIPTIN
     Route: 048
     Dates: start: 20180414, end: 20180728
  18. VICTOZA [Concomitant]
     Active Substance: LIRAGLUTIDE
     Route: 058
     Dates: start: 20180728, end: 20180730
  19. VICTOZA [Concomitant]
     Active Substance: LIRAGLUTIDE
     Route: 058
     Dates: start: 20180731, end: 20180802
  20. VICTOZA [Concomitant]
     Active Substance: LIRAGLUTIDE
     Route: 058
     Dates: start: 20180803
  21. INSULIN GLARGINE [Concomitant]
     Active Substance: INSULIN GLARGINE
     Route: 065
     Dates: start: 20180526, end: 20180609
  22. INSULIN GLARGINE [Concomitant]
     Active Substance: INSULIN GLARGINE
     Route: 065
     Dates: start: 20180610, end: 20180623
  23. INSULIN GLARGINE [Concomitant]
     Active Substance: INSULIN GLARGINE
     Route: 065
     Dates: start: 20180624, end: 20180803
  24. INSULIN GLARGINE [Concomitant]
     Active Substance: INSULIN GLARGINE
     Route: 065
     Dates: start: 20180804, end: 20180805
  25. INSULIN GLARGINE [Concomitant]
     Active Substance: INSULIN GLARGINE
     Route: 065
     Dates: start: 20180806, end: 20180807
  26. INSULIN GLARGINE [Concomitant]
     Active Substance: INSULIN GLARGINE
     Route: 065
     Dates: start: 20180808, end: 20180808
  27. INSULIN GLARGINE [Concomitant]
     Active Substance: INSULIN GLARGINE
     Route: 065
     Dates: start: 20180809, end: 20180908
  28. INSULIN GLARGINE [Concomitant]
     Active Substance: INSULIN GLARGINE
     Route: 065
     Dates: start: 20180909, end: 20181221
  29. INSULIN GLARGINE [Concomitant]
     Active Substance: INSULIN GLARGINE
     Route: 065
     Dates: start: 20181222, end: 20190322
  30. INSULIN GLARGINE [Concomitant]
     Active Substance: INSULIN GLARGINE
     Route: 065
     Dates: start: 20190323

REACTIONS (5)
  - Diabetes mellitus [Recovering/Resolving]
  - Prostate cancer [Unknown]
  - Oedema peripheral [Unknown]
  - Prescribed underdose [Unknown]
  - Off label use [Unknown]

NARRATIVE: CASE EVENT DATE: 20171213
